FAERS Safety Report 15046061 (Version 1)
Quarter: 2018Q2

REPORT INFORMATION
  Report Type: Spontaneous
  Country: GB (occurrence: GB)
  Receive Date: 20180621
  Receipt Date: 20180621
  Transmission Date: 20180711
  Serious: Yes (Life-Threatening)
  Sender: FDA-Public Use
  Company Number: GB-BAUSCH-BL-2018-016895

PATIENT
  Age: 27 Year
  Sex: Male
  Weight: 80.4 kg

DRUGS (3)
  1. CO-AMOXICLAV [Suspect]
     Active Substance: AMOXICILLIN\CLAVULANIC ACID
     Indication: ANIMAL BITE
     Route: 048
     Dates: start: 20171227, end: 20171228
  2. DOXYCYCLINE. [Suspect]
     Active Substance: DOXYCYCLINE
     Indication: ANIMAL BITE
     Route: 048
     Dates: start: 20171229, end: 20180102
  3. METRONIDAZOLE. [Suspect]
     Active Substance: METRONIDAZOLE
     Indication: ANIMAL BITE
     Route: 048
     Dates: start: 20171229, end: 20180102

REACTIONS (3)
  - Pharyngeal oedema [Not Recovered/Not Resolved]
  - Dyspnoea [Not Recovered/Not Resolved]
  - Swelling face [Not Recovered/Not Resolved]

NARRATIVE: CASE EVENT DATE: 20171229
